FAERS Safety Report 7296833-7 (Version None)
Quarter: 2011Q1

REPORT INFORMATION
  Report Type: 
  Country: None (occurrence: None)
  Receive Date: 20110216
  Receipt Date: 20101025
  Transmission Date: 20110831
  Serious: No
  Sender: FDA-Public Use
  Company Number: US-BAYER-201022974BCC

PATIENT
  Sex: Male
  Weight: 72.727 kg

DRUGS (1)
  1. ALEVE [Suspect]
     Indication: ARTHRALGIA
     Dosage: BOTTLE COUNT 24S
     Dates: start: 20101025

REACTIONS (1)
  - NO ADVERSE EVENT [None]
